FAERS Safety Report 6097765-2 (Version None)
Quarter: 2009Q1

REPORT INFORMATION
  Report Type: 
  Country: None (occurrence: None)
  Receive Date: 20090227
  Receipt Date: 20090127
  Transmission Date: 20090719
  Serious: Yes (Death)
  Sender: FDA-Public Use
  Company Number: JP-JNJFOC-20041106392

PATIENT
  Sex: Male
  Weight: 45 kg

DRUGS (48)
  1. LEUSTATIN [Suspect]
     Route: 041
     Dates: start: 20040802, end: 20041023
  2. LEUSTATIN [Suspect]
     Route: 041
     Dates: start: 20040802, end: 20041023
  3. LEUSTATIN [Suspect]
     Route: 041
     Dates: start: 20040802, end: 20041023
  4. LEUSTATIN [Suspect]
     Indication: MANTLE CELL LYMPHOMA
     Route: 041
     Dates: start: 20040802, end: 20041023
  5. MITOXANTRONE HYDROCHLORIDE [Suspect]
     Route: 041
  6. MITOXANTRONE HYDROCHLORIDE [Suspect]
     Route: 041
  7. MITOXANTRONE HYDROCHLORIDE [Suspect]
     Route: 041
  8. MITOXANTRONE HYDROCHLORIDE [Suspect]
     Indication: MANTLE CELL LYMPHOMA
     Route: 041
  9. RITUXIMAB [Concomitant]
     Route: 041
  10. RITUXIMAB [Concomitant]
     Route: 041
  11. RITUXIMAB [Concomitant]
     Route: 041
  12. RITUXIMAB [Concomitant]
     Indication: MANTLE CELL LYMPHOMA
     Route: 041
  13. ACETAMINOPHEN [Concomitant]
     Route: 048
  14. ACETAMINOPHEN [Concomitant]
     Route: 048
  15. ACETAMINOPHEN [Concomitant]
     Route: 048
  16. ACETAMINOPHEN [Concomitant]
     Indication: PROPHYLAXIS
     Route: 048
  17. CHLORPHENIRAMINE MALEATE [Concomitant]
     Route: 041
  18. CHLORPHENIRAMINE MALEATE [Concomitant]
     Route: 041
  19. CHLORPHENIRAMINE MALEATE [Concomitant]
     Route: 041
  20. CHLORPHENIRAMINE MALEATE [Concomitant]
     Indication: PROPHYLAXIS
     Route: 041
  21. FAMOTIDINE [Concomitant]
     Indication: PROPHYLAXIS AGAINST GASTROINTESTINAL ULCER
     Route: 048
  22. FLUCONAZOLE [Concomitant]
     Indication: ANTIFUNGAL PROPHYLAXIS
     Route: 048
  23. ONDANSETRON [Concomitant]
     Route: 048
  24. ONDANSETRON [Concomitant]
     Route: 048
  25. ONDANSETRON [Concomitant]
     Indication: VOMITING
     Route: 048
  26. ONDANSETRON [Concomitant]
     Indication: NAUSEA
     Route: 048
  27. SENNOSIDE [Concomitant]
     Indication: CONSTIPATION
     Route: 048
  28. PANTETHINE [Concomitant]
     Indication: CONSTIPATION
     Route: 048
  29. MAGNESIUM OXIDE [Concomitant]
     Indication: CONSTIPATION
     Route: 048
  30. CIPROFLOXACIN HYDROCHLORIDE [Concomitant]
     Indication: ANTIBIOTIC PROPHYLAXIS
     Route: 048
  31. MEFENAMIC ACID [Concomitant]
     Indication: ABDOMINAL PAIN
     Route: 048
  32. CEFTAZIDIME [Concomitant]
     Indication: PYREXIA
     Route: 041
  33. CEFTAZIDIME [Concomitant]
     Indication: NEUTROPENIA
     Route: 041
  34. NON-PYRINE PREPARATION [Concomitant]
     Indication: NASOPHARYNGITIS
     Route: 048
  35. CEFDINIR [Concomitant]
     Indication: NASOPHARYNGITIS
     Route: 048
  36. EPRAZINONE HYDROCHLORIDE [Concomitant]
     Indication: NASOPHARYNGITIS
     Route: 048
  37. CEFTAZIDIME [Concomitant]
     Route: 041
  38. CEFTAZIDIME [Concomitant]
     Route: 041
  39. BUTYLSCOPOLAMINE BROMIDE [Concomitant]
     Indication: ABDOMINAL PAIN
     Route: 042
  40. PENTAZOCINE LACTATE [Concomitant]
     Indication: ABDOMINAL PAIN
     Route: 042
  41. CEFOZOPRAN HYDROCHLORIDE [Concomitant]
     Indication: PYREXIA
     Route: 041
  42. CEFOZOPRAN HYDROCHLORIDE [Concomitant]
     Indication: FEBRILE NEUTROPENIA
     Route: 041
  43. FILGRASTIM [Concomitant]
     Route: 058
  44. FILGRASTIM [Concomitant]
     Route: 058
  45. FILGRASTIM [Concomitant]
     Route: 058
  46. FILGRASTIM [Concomitant]
     Route: 058
  47. FILGRASTIM [Concomitant]
     Route: 058
  48. FILGRASTIM [Concomitant]
     Route: 058

REACTIONS (12)
  - ALANINE AMINOTRANSFERASE INCREASED [None]
  - ANAEMIA [None]
  - ASPARTATE AMINOTRANSFERASE INCREASED [None]
  - ENTERITIS INFECTIOUS [None]
  - GASTRIC CANCER [None]
  - HYPOALBUMINAEMIA [None]
  - HYPOPROTEINAEMIA [None]
  - LEUKOPENIA [None]
  - LYMPHOPENIA [None]
  - NASOPHARYNGITIS [None]
  - PNEUMONIA [None]
  - THROMBOCYTOPENIA [None]
